FAERS Safety Report 6734137-9 (Version None)
Quarter: 2010Q2

REPORT INFORMATION
  Report Type: 
  Country: None (occurrence: None)
  Receive Date: 20100520
  Receipt Date: 20100513
  Transmission Date: 20101027
  Serious: Yes (Other)
  Sender: FDA-Public Use
  Company Number: GB-NAPPMUNDI-GBR-2009-0005625

PATIENT
  Sex: Male

DRUGS (6)
  1. MST CONTINUS SUSPENSION 60 MG [Suspect]
     Indication: NEURALGIA
     Dosage: 60 MG, BID
  2. GABAPENTIN [Concomitant]
     Indication: DRUG USE FOR UNKNOWN INDICATION
  3. LACTULOSE [Concomitant]
     Indication: DRUG USE FOR UNKNOWN INDICATION
  4. ANTIHYPERTENSIVES [Concomitant]
     Indication: BLOOD PRESSURE
  5. ZIMOVANE [Concomitant]
     Indication: DRUG USE FOR UNKNOWN INDICATION
  6. STATIN                             /00084401/ [Concomitant]
     Indication: DRUG USE FOR UNKNOWN INDICATION

REACTIONS (1)
  - WITHDRAWAL SYNDROME [None]
